FAERS Safety Report 13816860 (Version 1)
Quarter: 2017Q3

REPORT INFORMATION
  Report Type: Spontaneous
  Country: US (occurrence: US)
  Receive Date: 20170731
  Receipt Date: 20170731
  Transmission Date: 20171127
  Serious: No
  Sender: FDA-Public Use
  Company Number: US-JNJFOC-20170706421

PATIENT
  Age: 62 Year
  Sex: Male
  Weight: 77.11 kg

DRUGS (2)
  1. ZYRTEC [Suspect]
     Active Substance: CETIRIZINE HYDROCHLORIDE
     Indication: MULTIPLE ALLERGIES
     Dosage: 1 TABLET, ONE TIME ON 06-JUL-2017, BUT WILL CONTINUE TO USE THE PRODUCT
     Route: 048
     Dates: start: 20170706
  2. ZYRTEC [Suspect]
     Active Substance: CETIRIZINE HYDROCHLORIDE
     Route: 048

REACTIONS (1)
  - Therapeutic response decreased [Unknown]
